FAERS Safety Report 5481849-3 (Version None)
Quarter: 2007Q4

REPORT INFORMATION
  Report Type: 
  Country: None (occurrence: None)
  Receive Date: 20071010
  Receipt Date: 20070925
  Transmission Date: 20080405
  Serious: No
  Sender: FDA-Public Use
  Company Number: US-BOEHRINGER INGELHEIM PHARMACEUTICALS, INC.-2007-BP-20458BP

PATIENT
  Sex: Female

DRUGS (11)
  1. SPIRIVA [Suspect]
     Indication: CHRONIC OBSTRUCTIVE PULMONARY DISEASE
     Route: 055
     Dates: start: 20070801
  2. SPIRIVA [Suspect]
     Indication: ASTHMA
  3. IMDUR [Concomitant]
     Indication: HYPERTENSION
  4. NORVASC [Concomitant]
     Indication: HYPERTENSION
  5. COZAAR [Concomitant]
     Indication: HYPERTENSION
  6. ZOCOR [Concomitant]
     Indication: BLOOD CHOLESTEROL INCREASED
  7. K-DUR 10 [Concomitant]
  8. LASIX [Concomitant]
  9. ECOTRIN [Concomitant]
  10. FLOVENT [Concomitant]
  11. ALBUTEROL [Concomitant]
     Route: 055

REACTIONS (3)
  - CHEST PAIN [None]
  - COUGH [None]
  - SNEEZING [None]
